FAERS Safety Report 11926979 (Version 1)
Quarter: 2016Q1

REPORT INFORMATION
  Report Type: Spontaneous
  Country: US (occurrence: None)
  Receive Date: 20160115
  Receipt Date: 20160115
  Transmission Date: 20160526
  Serious: No
  Sender: FDA-Public Use
  Company Number: None

PATIENT
  Age: 56 Year
  Sex: Male

DRUGS (1)
  1. SUTENT [Suspect]
     Active Substance: SUNITINIB MALATE
     Indication: NEOPLASM MALIGNANT
     Route: 048
     Dates: start: 20151228

REACTIONS (6)
  - Nausea [None]
  - Pyrexia [None]
  - Dysarthria [None]
  - Myalgia [None]
  - Chills [None]
  - Musculoskeletal stiffness [None]

NARRATIVE: CASE EVENT DATE: 20160112
